FAERS Safety Report 19794633 (Version 1)
Quarter: 2021Q3

REPORT INFORMATION
  Report Type: Spontaneous
  Country: US (occurrence: US)
  Receive Date: 20210907
  Receipt Date: 20210907
  Transmission Date: 20211014
  Serious: No
  Sender: FDA-Public Use
  Company Number: US-SCIEGENPHARMA-2021SCISPO00075

PATIENT

DRUGS (1)
  1. BUPROPION HYDROCHLORIDE. [Suspect]
     Active Substance: BUPROPION HYDROCHLORIDE
     Indication: PRODUCT USED FOR UNKNOWN INDICATION
     Dosage: BOTTLES OF 60 TABLETS
     Route: 048

REACTIONS (3)
  - Retching [Unknown]
  - Product odour abnormal [Unknown]
  - Product dose omission issue [Unknown]
